FAERS Safety Report 6691573-7 (Version None)
Quarter: 2010Q2

REPORT INFORMATION
  Report Type: 
  Country: None (occurrence: None)
  Receive Date: 20100422
  Receipt Date: 20100419
  Transmission Date: 20101027
  Serious: Yes (Hospitalization)
  Sender: FDA-Public Use
  Company Number: CHPA2010US07018

PATIENT
  Sex: Female

DRUGS (2)
  1. GAS-X (NCH) [Suspect]
     Indication: DYSPEPSIA
     Dosage: UNK, UNK
     Route: 048
     Dates: start: 20100416, end: 20100416
  2. GAS-X (NCH) [Suspect]
     Indication: FLATULENCE

REACTIONS (3)
  - ANAPHYLACTIC REACTION [None]
  - DYSPNOEA [None]
  - OFF LABEL USE [None]
